FAERS Safety Report 7850519-6 (Version None)
Quarter: 2011Q4

REPORT INFORMATION
  Report Type: 
  Country: None (occurrence: None)
  Receive Date: 20111026
  Receipt Date: 20111026
  Transmission Date: 20120403
  Serious: No
  Sender: FDA-Public Use
  Company Number: None

PATIENT
  Age: 41 Year
  Sex: Female
  Weight: 71.667 kg

DRUGS (1)
  1. DOXYCYCLINE HYCLATE [Suspect]
     Indication: ACNE
     Dosage: 1 CAPSULE
     Route: 048
     Dates: start: 20111012, end: 20111025

REACTIONS (2)
  - HEART RATE IRREGULAR [None]
  - PALPITATIONS [None]
